FAERS Safety Report 23169297 (Version 1)
Quarter: 2023Q4

REPORT INFORMATION
  Report Type: Spontaneous
  Country: JP (occurrence: None)
  Receive Date: 20231110
  Receipt Date: 20231110
  Transmission Date: 20240110
  Serious: Yes (Life-Threatening, Other)
  Sender: FDA-Public Use
  Company Number: JP-ACS-20230338

PATIENT
  Age: 87 Year
  Sex: Female

DRUGS (3)
  1. CEFAZOLIN [Suspect]
     Active Substance: CEFAZOLIN
     Indication: Tumour excision
  2. LIDOCAINE [Concomitant]
     Active Substance: LIDOCAINE
     Indication: Local anaesthesia
  3. EPINEPHRINE 1% [Concomitant]
     Indication: Local anaesthesia

REACTIONS (1)
  - Kounis syndrome [Recovered/Resolved]
